FAERS Safety Report 17402338 (Version 3)
Quarter: 2020Q1

REPORT INFORMATION
  Report Type: Spontaneous
  Country: US (occurrence: US)
  Receive Date: 20200211
  Receipt Date: 20200227
  Transmission Date: 20200409
  Serious: No
  Sender: FDA-Public Use
  Company Number: US-SA-2020SA034574

PATIENT
  Age: 37 Year
  Sex: Female

DRUGS (1)
  1. CABLIVI [Suspect]
     Active Substance: CAPLACIZUMAB-YHDP
     Indication: THROMBOTIC MICROANGIOPATHY
     Dosage: 11 MG, QD
     Route: 058
     Dates: start: 20200123

REACTIONS (6)
  - Headache [Unknown]
  - Injection site rash [Unknown]
  - Menorrhagia [Unknown]
  - Injection site pruritus [Unknown]
  - Unevaluable event [Unknown]
  - Contusion [Unknown]
